FAERS Safety Report 12583946 (Version 1)
Quarter: 2016Q3

REPORT INFORMATION
  Report Type: Spontaneous
  Country: RU (occurrence: RU)
  Receive Date: 20160722
  Receipt Date: 20160722
  Transmission Date: 20161109
  Serious: Yes (Other)
  Sender: FDA-Public Use
  Company Number: RU-BAYER-2016-142527

PATIENT
  Age: 42 Year
  Sex: Female

DRUGS (1)
  1. QLAIRA [Suspect]
     Active Substance: DIENOGEST\ESTRADIOL VALERATE
     Dosage: UNK
     Dates: start: 20160706, end: 201607

REACTIONS (3)
  - Hypertensive crisis [None]
  - Headache [None]
  - Diarrhoea [None]

NARRATIVE: CASE EVENT DATE: 20160706
